FAERS Safety Report 7760099-1 (Version None)
Quarter: 2011Q3

REPORT INFORMATION
  Report Type: 
  Country: None (occurrence: None)
  Receive Date: 20110919
  Receipt Date: 20110908
  Transmission Date: 20111222
  Serious: Yes (Other)
  Sender: FDA-Public Use
  Company Number: CA-BAYER-2011-064408

PATIENT
  Age: 48 Year
  Sex: Female
  Weight: 190 kg

DRUGS (3)
  1. YAZ [Suspect]
     Indication: MENORRHAGIA
     Dosage: 1 DF, QD
     Route: 048
     Dates: start: 20110101, end: 20110424
  2. ADVIL LIQUI-GELS [Concomitant]
  3. NAPROXEN (ALEVE) [Concomitant]

REACTIONS (4)
  - PARAESTHESIA [None]
  - FEELING HOT [None]
  - PALPITATIONS [None]
  - DYSPNOEA [None]
